FAERS Safety Report 6769774-9 (Version None)
Quarter: 2010Q2

REPORT INFORMATION
  Report Type: 
  Country: None (occurrence: None)
  Receive Date: 20100615
  Receipt Date: 20100609
  Transmission Date: 20101027
  Serious: Yes (Death, Other)
  Sender: FDA-Public Use
  Company Number: DE-ROCHE-708406

PATIENT
  Sex: Female
  Weight: 59 kg

DRUGS (1)
  1. CAPECITABINE [Suspect]
     Indication: COLON CANCER METASTATIC
     Route: 065
     Dates: start: 20090930, end: 20100302

REACTIONS (4)
  - ANAEMIA [None]
  - CACHEXIA [None]
  - GENERALISED OEDEMA [None]
  - RETROPERITONEAL ABSCESS [None]
